FAERS Safety Report 8530980 (Version 8)
Quarter: 2012Q4

REPORT INFORMATION
  Report Type: 
  Country: US (occurrence: US)
  Receive Date: 20120426
  Receipt Date: 20120925
  Transmission Date: 20130627
  Serious: Yes (Other)
  Sender: FDA-Public Use
  Company Number: US-PFIZER INC-2012099630

PATIENT
  Age: 64 Year
  Sex: Male
  Weight: 72.3 kg

DRUGS (17)
  1. SUTENT [Suspect]
     Indication: GASTROINTESTINAL STROMAL TUMOUR
     Dosage: 37.5 mg, 1x/day
     Route: 048
     Dates: start: 201107, end: 20120516
  2. SUTENT [Suspect]
     Dosage: 12.5 mg, 3x/day
     Dates: start: 20110805, end: 20120516
  3. SUTENT [Suspect]
     Dosage: 12.5 mg, UNK
     Dates: start: 20120531
  4. SUTENT [Suspect]
     Dosage: 37.5 mg, UNK
     Dates: start: 20120613
  5. SUTENT [Suspect]
     Dosage: 12.5 mg, 3x/day (12.5 mg capsule 3x per day)
     Dates: start: 201107
  6. DIOVAN [Concomitant]
     Indication: BLOOD PRESSURE
     Dosage: 320 mg, 1x/day, once a day in the morning
     Route: 048
  7. VITAMIN B6 [Concomitant]
     Dosage: 100 mg, UNK
  8. ASPIRIN [Concomitant]
     Indication: CARDIAC DISORDER
     Dosage: 81 mg, 1x/day
     Route: 048
  9. ASPIRIN [Concomitant]
     Indication: HEADACHE
  10. DILTIAZEM HYDROCHLORIDE [Concomitant]
     Indication: BLOOD PRESSURE
     Dosage: 240 mg, 1x/day (1 tablet in the evening)
     Route: 048
  11. ANACIN [Concomitant]
     Indication: HEADACHE
     Dosage: 1 DF, as needed (1 tablet)
     Route: 048
  12. COMBIGAN [Concomitant]
     Dosage: 1 DF (1 drop), 1x/day
     Route: 047
  13. CENTRUM SILVER [Concomitant]
     Indication: SUPPLEMENTATION THERAPY
     Dosage: 1 DF, 1x/day (1 tablet in the morning)
     Route: 048
  14. PREDAIR FORTE [Concomitant]
     Dosage: 1 DF (1 drop), 1x/day
     Route: 047
  15. AMOX TR-K CLV [Concomitant]
     Indication: SINUSITIS
     Dosage: 125 mg, 2x/day
     Route: 048
  16. AMOXICILLIN [Concomitant]
     Dosage: 125 mg, 2x/day
     Route: 048
  17. IRON [Concomitant]
     Dosage: UNK, 1x/day (1 tablet)
     Route: 048

REACTIONS (29)
  - Chest pain [Recovered/Resolved]
  - Cough [Recovered/Resolved]
  - Dyspnoea [Recovered/Resolved]
  - Bone pain [Recovered/Resolved]
  - Chest discomfort [Recovered/Resolved]
  - Musculoskeletal discomfort [Recovered/Resolved]
  - Palmar-plantar erythrodysaesthesia syndrome [Recovered/Resolved]
  - Skin disorder [Recovered/Resolved]
  - White blood cell count abnormal [Unknown]
  - Blood pressure fluctuation [Unknown]
  - Weight decreased [Unknown]
  - Dysgeusia [Unknown]
  - Decreased appetite [Unknown]
  - Nausea [Unknown]
  - Vomiting [Unknown]
  - Diarrhoea [Recovering/Resolving]
  - Stomatitis [Unknown]
  - Hyperkeratosis [Unknown]
  - Dysgraphia [Unknown]
  - Pruritus [Unknown]
  - Ageusia [Recovered/Resolved]
  - Asthenia [Recovered/Resolved]
  - Fatigue [Recovering/Resolving]
  - Weight decreased [Recovered/Resolved]
  - Body height decreased [Unknown]
  - Cough [Unknown]
  - Dyspnoea [Unknown]
  - Blood lactate dehydrogenase increased [Unknown]
  - Insomnia [Unknown]
